FAERS Safety Report 17725119 (Version 1)
Quarter: 2020Q2

REPORT INFORMATION
  Report Type: Spontaneous
  Country: US (occurrence: US)
  Receive Date: 20200429
  Receipt Date: 20200429
  Transmission Date: 20200714
  Serious: No
  Sender: FDA-Public Use
  Company Number: US-INCYTE CORPORATION-2020IN003156

PATIENT

DRUGS (3)
  1. JAKAFI [Suspect]
     Active Substance: RUXOLITINIB
     Dosage: 5 MG BID ALTERNATING WITH 10 MG BID EVERY OTHER DAY
     Route: 048
     Dates: start: 20191226
  2. JAKAFI [Suspect]
     Active Substance: RUXOLITINIB
     Dosage: 10 MILLIGRAM, BID
     Route: 048
     Dates: start: 20191226
  3. JAKAFI [Suspect]
     Active Substance: RUXOLITINIB
     Indication: MYELOFIBROSIS
     Dosage: 5 MG BID ALTERNATING WITH 10 MG BID EVERY OTHER DAY
     Route: 048
     Dates: start: 20191226

REACTIONS (3)
  - Splenomegaly [Unknown]
  - Urinary tract infection [Unknown]
  - Hepatomegaly [Unknown]
